FAERS Safety Report 6863532-2 (Version None)
Quarter: 2010Q3

REPORT INFORMATION
  Report Type: 
  Country: None (occurrence: None)
  Receive Date: 20100720
  Receipt Date: 20100712
  Transmission Date: 20110219
  Serious: Yes (Other)
  Sender: FDA-Public Use
  Company Number: 2010SP038412

PATIENT
  Sex: Male

DRUGS (2)
  1. TEMODAL [Suspect]
     Indication: GLIOBLASTOMA
  2. TEMODAL [Suspect]
     Indication: PANCREATIC CARCINOMA

REACTIONS (3)
  - ORAL CANDIDIASIS [None]
  - PNEUMONIA [None]
  - THROMBOCYTOPENIA [None]
